FAERS Safety Report 9143053 (Version 1)
Quarter: 2013Q1

REPORT INFORMATION
  Report Type: Spontaneous
  Country: US (occurrence: US)
  Receive Date: 20130306
  Receipt Date: 20130306
  Transmission Date: 20140127
  Serious: No
  Sender: FDA-Public Use
  Company Number: US-PFIZER INC-2013076967

PATIENT
  Age: 44 Year
  Sex: Female
  Weight: 58.05 kg

DRUGS (1)
  1. ADVIL MIGRAINE [Suspect]
     Indication: MIGRAINE
     Dosage: 400 MG, SINGLE
     Route: 048
     Dates: start: 20130302, end: 20130302

REACTIONS (1)
  - Drug ineffective [Unknown]
